FAERS Safety Report 17799777 (Version 1)
Quarter: 2020Q2

REPORT INFORMATION
  Report Type: Spontaneous
  Country: CN (occurrence: CN)
  Receive Date: 20200518
  Receipt Date: 20200518
  Transmission Date: 20200714
  Serious: Yes (Other)
  Sender: FDA-Public Use
  Company Number: NVSC2020CN134608

PATIENT
  Sex: Male

DRUGS (1)
  1. CERITINIB [Suspect]
     Active Substance: CERITINIB
     Indication: LUNG ADENOCARCINOMA
     Dosage: UNK
     Route: 048
     Dates: start: 20200405

REACTIONS (2)
  - Abdominal discomfort [Unknown]
  - Gastritis [Unknown]
